FAERS Safety Report 19815333 (Version 1)
Quarter: 2021Q3

REPORT INFORMATION
  Report Type: Spontaneous
  Country: CA (occurrence: CA)
  Receive Date: 20210909
  Receipt Date: 20210909
  Transmission Date: 20211014
  Serious: Yes (Hospitalization)
  Sender: FDA-Public Use
  Company Number: CA-TEVA-2021-CA-1949489

PATIENT
  Age: 79 Year
  Sex: Female
  Weight: 80 kg

DRUGS (5)
  1. GABAPENTIN. [Suspect]
     Active Substance: GABAPENTIN
     Indication: PAIN IN EXTREMITY
     Dosage: 300 MILLIGRAM DAILY;
     Route: 048
  2. LAX?A?DAY [Concomitant]
     Active Substance: POLYETHYLENE GLYCOL 3350
  3. K?DUR [Concomitant]
     Active Substance: POTASSIUM CHLORIDE
  4. GLYCERIN SUPPOSITORIES [Concomitant]
  5. DULCOLAX NOS [Concomitant]
     Active Substance: BISACODYL OR DOCUSATE SODIUM

REACTIONS (3)
  - Delirium [Recovered/Resolved]
  - Mental disorder [Recovered/Resolved]
  - Urinary retention [Recovered/Resolved]
